FAERS Safety Report 5646152-7 (Version None)
Quarter: 2008Q1

REPORT INFORMATION
  Report Type: 
  Country: None (occurrence: None)
  Receive Date: 20080229
  Receipt Date: 20080218
  Transmission Date: 20080703
  Serious: Yes (Other)
  Sender: FDA-Public Use
  Company Number: GB-PFIZER INC-2008017043

PATIENT
  Age: 35 Year
  Sex: Female
  Weight: 84.6 kg

DRUGS (3)
  1. CHANTIX [Suspect]
     Indication: SMOKING CESSATION THERAPY
     Route: 048
     Dates: start: 20070824, end: 20071130
  2. MICRONOR [Concomitant]
  3. ALBUTEROL [Concomitant]
     Route: 055

REACTIONS (3)
  - ANXIETY [None]
  - DEPRESSION [None]
  - TEARFULNESS [None]
